FAERS Safety Report 6278033-2 (Version None)
Quarter: 2009Q3

REPORT INFORMATION
  Report Type: 
  Country: None (occurrence: None)
  Receive Date: 20090722
  Receipt Date: 20090710
  Transmission Date: 20100115
  Serious: Yes (Hospitalization)
  Sender: FDA-Public Use
  Company Number: PHHY2009AN28600

PATIENT
  Age: 49 Year
  Sex: Female

DRUGS (1)
  1. ACLASTA [Suspect]
     Indication: OSTEOPENIA
     Dosage: 5 MG, UNK
     Route: 042
     Dates: start: 20090402

REACTIONS (5)
  - ARTHRALGIA [None]
  - DEHYDRATION [None]
  - HYPERTHERMIA [None]
  - HYPOKALAEMIA [None]
  - MYALGIA [None]
